FAERS Safety Report 5069173-4 (Version None)
Quarter: 2006Q3

REPORT INFORMATION
  Report Type: 
  Country: None (occurrence: None)
  Receive Date: 20060717
  Receipt Date: 20060328
  Transmission Date: 20061208
  Serious: No
  Sender: FDA-Public Use
  Company Number: 2006000749

PATIENT
  Age: 71 Year
  Sex: Female

DRUGS (2)
  1. TARCEVA [Suspect]
     Indication: LUNG NEOPLASM MALIGNANT
     Dosage: ORAL
     Route: 048
  2. CHILDREN'S ASPIRIN (ACETYLSALICYLIC ACID) [Concomitant]

REACTIONS (4)
  - EPISTAXIS [None]
  - NASAL DISCOMFORT [None]
  - RASH [None]
  - SCAB [None]
